FAERS Safety Report 5057013-9 (Version None)
Quarter: 2006Q2

REPORT INFORMATION
  Report Type: 
  Country: None (occurrence: None)
  Receive Date: 20060622
  Receipt Date: 20060131
  Transmission Date: 20061013
  Serious: Yes (Hospitalization)
  Sender: FDA-Public Use
  Company Number: US-JNJFOC-20051206185

PATIENT
  Age: 86 Year
  Sex: Female
  Weight: 56.246 kg

DRUGS (3)
  1. DURAGESIC-100 [Suspect]
     Indication: DRUG USE FOR UNKNOWN INDICATION
     Dosage: 25 UG/HR, 1 IN 72 HOUR, TRANSDERMAL
     Route: 062
     Dates: start: 20050316
  2. CELEBREX [Concomitant]
  3. NORVASC [Concomitant]

REACTIONS (1)
  - DYSPNOEA [None]
